FAERS Safety Report 6480651-3 (Version None)
Quarter: 2009Q4

REPORT INFORMATION
  Report Type: 
  Country: None (occurrence: None)
  Receive Date: 20091202
  Receipt Date: 20091110
  Transmission Date: 20100525
  Serious: Yes (Life-Threatening)
  Sender: FDA-Public Use
  Company Number: 002407

PATIENT
  Sex: Female
  Weight: 54.5 kg

DRUGS (7)
  1. LACOSAMIDE [Suspect]
     Indication: CONVULSION
     Dosage: 125 MG ORAL
     Route: 048
     Dates: start: 20090901, end: 20091005
  2. LEVETIRACETAM [Suspect]
     Indication: CONVULSION
     Dosage: ORAL
     Route: 048
  3. DIVALPROEX SODIUM [Concomitant]
  4. ZONISAMIDE [Concomitant]
  5. LEVOTHYROXINE SODIUM [Concomitant]
  6. FOLIC ACID [Concomitant]
  7. ATIVAN [Concomitant]

REACTIONS (7)
  - ABDOMINAL PAIN UPPER [None]
  - AGITATION [None]
  - ANGER [None]
  - IRRITABILITY [None]
  - RASH PRURITIC [None]
  - SELF-INJURIOUS IDEATION [None]
  - WEIGHT DECREASED [None]
